FAERS Safety Report 9381601 (Version 1)
Quarter: 2013Q3

REPORT INFORMATION
  Report Type: Spontaneous
  Country: US (occurrence: US)
  Receive Date: 20130703
  Receipt Date: 20130703
  Transmission Date: 20140515
  Serious: No
  Sender: FDA-Public Use
  Company Number: US-ASTRAZENECA-2013SE41902

PATIENT
  Age: 65 Year
  Sex: Female
  Weight: 90.7 kg

DRUGS (3)
  1. PULMICORT FLEXHALER [Suspect]
     Indication: ASTHMA
     Route: 055
     Dates: start: 201305
  2. SIMVASTATIN [Concomitant]
  3. NABUMETONE [Concomitant]
     Indication: CARTILAGE INJURY

REACTIONS (2)
  - Dyspnoea exertional [Unknown]
  - Intentional drug misuse [Unknown]
